FAERS Safety Report 6653847-5 (Version None)
Quarter: 2010Q1

REPORT INFORMATION
  Report Type: 
  Country: None (occurrence: None)
  Receive Date: 20100326
  Receipt Date: 20100324
  Transmission Date: 20100710
  Serious: Yes (Hospitalization)
  Sender: FDA-Public Use
  Company Number: B0642592A

PATIENT
  Age: 78 Year
  Sex: Female

DRUGS (6)
  1. AUGMENTIN [Suspect]
     Indication: SUPERINFECTION
     Route: 048
     Dates: start: 20100204, end: 20100211
  2. KARDEGIC [Suspect]
     Indication: ATRIAL FIBRILLATION
     Route: 048
     Dates: start: 20100101, end: 20100215
  3. AMLOR [Concomitant]
     Route: 065
  4. CITALOPRAM HYDROBROMIDE [Concomitant]
     Route: 065
  5. RISPERDAL [Concomitant]
     Route: 065
  6. CORDARONE [Concomitant]
     Indication: ATRIAL FIBRILLATION
     Route: 065
     Dates: start: 20100101

REACTIONS (7)
  - ATROPHIC GLOSSITIS [None]
  - INTERSTITIAL LUNG DISEASE [None]
  - LARYNGEAL OEDEMA [None]
  - PRURIGO [None]
  - RASH GENERALISED [None]
  - RASH MACULAR [None]
  - TONGUE DISORDER [None]
